FAERS Safety Report 6685754-6 (Version None)
Quarter: 2010Q2

REPORT INFORMATION
  Report Type: 
  Country: None (occurrence: None)
  Receive Date: 20100415
  Receipt Date: 20100415
  Transmission Date: 20101027
  Serious: Yes (Hospitalization)
  Sender: FDA-Public Use
  Company Number: None

PATIENT
  Sex: Female
  Weight: 48.5349 kg

DRUGS (8)
  1. DAPTOMYCIN [Suspect]
     Indication: ARTHRITIS INFECTIVE
     Dosage: 400 MG ONCE DAILY IV DRIP
     Route: 041
     Dates: start: 20100304, end: 20100325
  2. CIPROFLOXACIN [Concomitant]
  3. PRAVASTATIN [Concomitant]
  4. FLUOXETINE [Concomitant]
  5. MEDROXYPROGESTERONE [Concomitant]
  6. CLONEZAPAM [Concomitant]
  7. ALENDRONATE SODIUM [Concomitant]
  8. ESTROPIPATE [Concomitant]

REACTIONS (3)
  - EOSINOPHILIA [None]
  - HYPOXIA [None]
  - PYREXIA [None]
